FAERS Safety Report 6976450 (Version 7)
Quarter: 2013Q4

REPORT INFORMATION
  Report Type: Report from Study
  Country: JP (occurrence: JP)
  Receive Date: 20090423
  Receipt Date: 20131004
  Transmission Date: 20140711
  Serious: Yes (Hospitalization)
  Sender: FDA-Public Use
  Company Number: PHHO2009JP04585

PATIENT
  Sex: 0
  Weight: 64 kg

DRUGS (7)
  1. AMN107 [Suspect]
     Indication: GASTROINTESTINAL STROMAL TUMOUR
     Dosage: 800 MG, QD
     Route: 048
     Dates: start: 20090330, end: 20090403
  2. AMN107 [Suspect]
     Dosage: 400 MG, QD
     Route: 048
     Dates: start: 20090408, end: 20130724
  3. HYPEN [Concomitant]
     Dosage: UNK
  4. TIENAM [Concomitant]
     Dosage: UNK
  5. INTRALIPOS [Concomitant]
  6. PURSENNID [Concomitant]
     Indication: CONSTIPATION
  7. MUCOSTA [Concomitant]
     Dosage: UNK

REACTIONS (10)
  - Jaundice [Recovered/Resolved]
  - Pyrexia [Unknown]
  - Tumour necrosis [Recovering/Resolving]
  - Infection [Recovering/Resolving]
  - Decreased appetite [Recovered/Resolved]
  - Abdominal tenderness [Recovering/Resolving]
  - Malaise [Recovered/Resolved]
  - Blood bilirubin increased [Recovered/Resolved]
  - Bilirubin conjugated increased [Recovered/Resolved]
  - Constipation [Recovered/Resolved]
